FAERS Safety Report 22611590 (Version 1)
Quarter: 2023Q2

REPORT INFORMATION
  Report Type: Spontaneous
  Country: DE (occurrence: DE)
  Receive Date: 20230616
  Receipt Date: 20230616
  Transmission Date: 20230721
  Serious: Yes (Other)
  Sender: FDA-Public Use
  Company Number: DE-009507513-2306DEU008046

PATIENT

DRUGS (1)
  1. PEMBROLIZUMAB [Suspect]
     Active Substance: PEMBROLIZUMAB
     Indication: Colorectal cancer metastatic
     Dosage: UNK
     Dates: start: 202005, end: 2020

REACTIONS (8)
  - Malignant neoplasm progression [Unknown]
  - Adrenalectomy [Unknown]
  - Pancreatectomy [Unknown]
  - Splenectomy [Unknown]
  - Gastrectomy [Unknown]
  - Oesophagoenterostomy [Unknown]
  - Fluid retention [Unknown]
  - Product use in unapproved indication [Unknown]

NARRATIVE: CASE EVENT DATE: 20200501
